FAERS Safety Report 4601231-8 (Version None)
Quarter: 2005Q1

REPORT INFORMATION
  Report Type: 
  Country: None (occurrence: None)
  Receive Date: 20050308
  Receipt Date: 20050228
  Transmission Date: 20050727
  Serious: Yes (Other)
  Sender: FDA-Public Use
  Company Number: US-JNJFOC-20050300145

PATIENT
  Age: 64 Year
  Sex: Female

DRUGS (8)
  1. DITROPAN XL [Suspect]
     Route: 049
  2. DITROPAN XL [Suspect]
     Route: 049
  3. DITROPAN XL [Suspect]
     Route: 049
  4. DITROPAN XL [Suspect]
     Route: 049
  5. ANTIINFLAMMATORY [Concomitant]
  6. DAYPRO [Concomitant]
  7. PROZAC [Concomitant]
  8. METAMUCIL-2 [Concomitant]

REACTIONS (3)
  - DYSURIA [None]
  - INTESTINAL OBSTRUCTION [None]
  - VISUAL DISTURBANCE [None]
